FAERS Safety Report 14573517 (Version 1)
Quarter: 2018Q1

REPORT INFORMATION
  Report Type: Spontaneous
  Country: FR (occurrence: FR)
  Receive Date: 20180226
  Receipt Date: 20180226
  Transmission Date: 20180509
  Serious: Yes (Life-Threatening)
  Sender: FDA-Public Use
  Company Number: FR-SA-2018SA040496

PATIENT
  Age: 79 Year
  Sex: Male

DRUGS (18)
  1. IPRATROPIUM BROMIDE\FENOTEROL HYDROBROMIDE [Concomitant]
     Active Substance: FENOTEROL HYDROBROMIDE\IPRATROPIUM BROMIDE
  2. OXEOL [Concomitant]
     Active Substance: BAMBUTEROL HYDROCHLORIDE
  3. LASILIX [Concomitant]
     Active Substance: FUROSEMIDE
  4. INEGY [Concomitant]
     Active Substance: EZETIMIBE\SIMVASTATIN
  5. ACTONEL [Concomitant]
     Active Substance: RISEDRONATE SODIUM
  6. PLAVIX [Suspect]
     Active Substance: CLOPIDOGREL BISULFATE
     Indication: MYOCARDIAL ISCHAEMIA
     Route: 048
     Dates: end: 20141214
  7. ZOPHREN [Suspect]
     Active Substance: ONDANSETRON
     Indication: PROPHYLAXIS OF NAUSEA AND VOMITING
     Route: 048
     Dates: start: 20141201, end: 20141201
  8. DISCOTRINE [Concomitant]
     Active Substance: NITROGLYCERIN
  9. APROVEL [Concomitant]
     Active Substance: IRBESARTAN
  10. LYRICA [Concomitant]
     Active Substance: PREGABALIN
  11. CARBOPLATIN. [Suspect]
     Active Substance: CARBOPLATIN
     Indication: BRONCHIAL CARCINOMA
     Dosage: SOLUTION INJECTABLE POUR PERFUSION
     Route: 042
     Dates: start: 20141201, end: 20141201
  12. ZYLORIC [Concomitant]
     Active Substance: ALLOPURINOL
  13. IMOVANE [Concomitant]
     Active Substance: ZOPICLONE
  14. ETOPOSIDE. [Suspect]
     Active Substance: ETOPOSIDE
     Indication: BRONCHIAL CARCINOMA
     Route: 042
     Dates: start: 20141201, end: 20141201
  15. SOLU-MEDROL [Suspect]
     Active Substance: METHYLPREDNISOLONE SODIUM SUCCINATE
     Indication: PROPHYLAXIS OF NAUSEA AND VOMITING
     Route: 048
     Dates: start: 20141201, end: 20141201
  16. VENTOLINE [Concomitant]
     Active Substance: ALBUTEROL
  17. CONTRAMAL [Concomitant]
     Active Substance: TRAMADOL HYDROCHLORIDE
  18. SYMBICORT [Concomitant]
     Active Substance: BUDESONIDE\FORMOTEROL FUMARATE DIHYDRATE

REACTIONS (3)
  - Melaena [Recovered/Resolved]
  - Febrile bone marrow aplasia [Recovered/Resolved]
  - Staphylococcal infection [Recovered/Resolved]

NARRATIVE: CASE EVENT DATE: 20141214
